FAERS Safety Report 24398891 (Version 1)
Quarter: 2024Q4

REPORT INFORMATION
  Report Type: Spontaneous
  Country: US (occurrence: None)
  Receive Date: 20241004
  Receipt Date: 20241004
  Transmission Date: 20250114
  Serious: Yes (Death)
  Sender: Public
  Company Number: None

PATIENT
  Age: 64 Year
  Sex: Male

DRUGS (4)
  1. PREZCOBIX [Suspect]
     Active Substance: COBICISTAT\DARUNAVIR ETHANOLATE
     Indication: HIV infection
     Dosage: 1 MG DAILY ORAL
     Route: 048
     Dates: start: 20230418
  2. TIVICAY [Suspect]
     Active Substance: DOLUTEGRAVIR SODIUM
     Indication: HIV infection
     Dosage: 1 MG DAILY ORAL
     Route: 048
     Dates: start: 20230418
  3. Diazapam 10mg [Concomitant]
     Dates: start: 20230522
  4. METHIMAZOLE [Concomitant]
     Active Substance: METHIMAZOLE
     Dates: start: 20240422

REACTIONS (1)
  - Cerebrovascular accident [None]

NARRATIVE: CASE EVENT DATE: 20241002
